FAERS Safety Report 5505624-6 (Version None)
Quarter: 2007Q4

REPORT INFORMATION
  Report Type: 
  Country: None (occurrence: None)
  Receive Date: 20071102
  Receipt Date: 20071023
  Transmission Date: 20080405
  Serious: Yes (Other)
  Sender: FDA-Public Use
  Company Number: BR-PFIZER INC-2007064431

PATIENT
  Sex: Female
  Weight: 54 kg

DRUGS (5)
  1. EXUBERA [Suspect]
     Indication: DIABETES MELLITUS
     Dosage: DAILY DOSE:7MG
     Route: 055
     Dates: start: 20070608, end: 20070621
  2. INSULIN DETEMIR [Concomitant]
     Dosage: DAILY DOSE:9I.U.
  3. ENALAPRIL MALEATE [Concomitant]
     Dosage: DAILY DOSE:20MG
     Route: 048
     Dates: start: 19950101
  4. EUTHYROX [Concomitant]
     Dosage: DAILY DOSE:75MCG
     Route: 048
     Dates: start: 19970101
  5. ACETYLSALICYLIC ACID SRT [Concomitant]
     Dosage: DAILY DOSE:100MG
     Route: 048
     Dates: start: 19950101

REACTIONS (3)
  - BLOOD GLUCOSE INCREASED [None]
  - DISORIENTATION [None]
  - HYPOGLYCAEMIA [None]
